FAERS Safety Report 18822391 (Version 9)
Quarter: 2022Q3

REPORT INFORMATION
  Report Type: Spontaneous
  Country: DE (occurrence: DE)
  Receive Date: 20210202
  Receipt Date: 20220713
  Transmission Date: 20221026
  Serious: Yes (Congenital Anomaly, Other)
  Sender: FDA-Public Use
  Company Number: NVSC2021DE021577

PATIENT

DRUGS (4)
  1. IVABRADINE [Suspect]
     Active Substance: IVABRADINE
     Indication: Foetal exposure during pregnancy
     Dosage: MATERNAL EXPOSURE DURING PREGNANCY: 15 MG QD
     Route: 064
  2. IVABRADINE [Suspect]
     Active Substance: IVABRADINE
     Dosage: MATERNAL EXPOSURE DURING PREGNANCY 5 MG
     Route: 064
  3. BISOPROLOL [Suspect]
     Active Substance: BISOPROLOL
     Indication: Foetal exposure during pregnancy
     Dosage: MATERNAL EXPOSURE DURING PREGNANCY: UNK
     Route: 064
  4. METOPROLOL [Suspect]
     Active Substance: METOPROLOL
     Indication: Foetal exposure during pregnancy
     Dosage: MATERNAL EXPOSURE DURING PREGNANCY UNK
     Route: 064

REACTIONS (8)
  - Large for dates baby [Unknown]
  - Atrial septal defect [Recovered/Resolved]
  - Cardiac septal hypertrophy [Unknown]
  - Cleft palate [Unknown]
  - Cardiac hypertrophy [Unknown]
  - Hypertrophic cardiomyopathy [Unknown]
  - Premature baby [Unknown]
  - Foetal exposure during pregnancy [Unknown]
